FAERS Safety Report 12155513 (Version 1)
Quarter: 2016Q1

REPORT INFORMATION
  Report Type: Spontaneous
  Country: DE (occurrence: DE)
  Receive Date: 20160307
  Receipt Date: 20160307
  Transmission Date: 20160526
  Serious: Yes (Hospitalization)
  Sender: FDA-Public Use
  Company Number: DE-BAYER-2016-045163

PATIENT
  Age: 28 Year

DRUGS (1)
  1. CIPROBAY [Suspect]
     Active Substance: CIPROFLOXACIN
     Indication: SINUSITIS
     Dosage: 250 MG, BID

REACTIONS (3)
  - Panic attack [Recovered/Resolved]
  - Gait disturbance [Recovered/Resolved]
  - Sensory disturbance [Not Recovered/Not Resolved]
